FAERS Safety Report 13455531 (Version 1)
Quarter: 2017Q2

REPORT INFORMATION
  Report Type: Spontaneous
  Country: US (occurrence: US)
  Receive Date: 20170418
  Receipt Date: 20170418
  Transmission Date: 20170830
  Serious: Yes (Other)
  Sender: FDA-Public Use
  Company Number: None

PATIENT
  Age: 65 Year
  Sex: Female
  Weight: 78.75 kg

DRUGS (8)
  1. BABY ASPIRIN [Concomitant]
     Active Substance: ASPIRIN
  2. LOSARTAN. [Concomitant]
     Active Substance: LOSARTAN
  3. METOPROLOL. [Concomitant]
     Active Substance: METOPROLOL
  4. AMLODIPINE [Concomitant]
     Active Substance: AMLODIPINE BESYLATE
  5. ATIVAN [Concomitant]
     Active Substance: LORAZEPAM
  6. ONE A DAY FOR WOMEN [Concomitant]
  7. VIIBRYD [Suspect]
     Active Substance: VILAZODONE HYDROCHLORIDE
     Indication: ANXIETY
     Dosage: ?          QUANTITY:1 TABLET(S);?
     Route: 048
     Dates: end: 20170416
  8. CLONIDINE. [Concomitant]
     Active Substance: CLONIDINE

REACTIONS (12)
  - Pruritus [None]
  - Somnolence [None]
  - Disturbance in attention [None]
  - Night sweats [None]
  - Nightmare [None]
  - Dyspnoea [None]
  - Anxiety [None]
  - Muscle tightness [None]
  - Myalgia [None]
  - Decreased interest [None]
  - Sleep paralysis [None]
  - Hypersomnia [None]

NARRATIVE: CASE EVENT DATE: 20170415
